FAERS Safety Report 8462546-9 (Version None)
Quarter: 2012Q2

REPORT INFORMATION
  Report Type: 
  Country: None (occurrence: None)
  Receive Date: 20120620
  Receipt Date: 20120620
  Transmission Date: 20120825
  Serious: Yes (Disabling)
  Sender: FDA-Public Use
  Company Number: None

PATIENT
  Sex: Male
  Weight: 90.7194 kg

DRUGS (1)
  1. PROPECIA [Suspect]
     Indication: ALOPECIA
     Dosage: 1MG DAILY ORAL
     Route: 048
     Dates: start: 20031001, end: 20070615

REACTIONS (7)
  - FEELING ABNORMAL [None]
  - LOSS OF LIBIDO [None]
  - ANXIETY [None]
  - INSOMNIA [None]
  - COGNITIVE DISORDER [None]
  - QUALITY OF LIFE DECREASED [None]
  - POISONING [None]
